FAERS Safety Report 14987619 (Version 1)
Quarter: 2018Q2

REPORT INFORMATION
  Report Type: Report from Study
  Country: BR (occurrence: BR)
  Receive Date: 20180608
  Receipt Date: 20180608
  Transmission Date: 20180711
  Serious: Yes (Other)
  Sender: FDA-Public Use
  Company Number: PHHY2018BR014362

PATIENT
  Age: 30 Year
  Sex: Female
  Weight: 69 kg

DRUGS (1)
  1. FORASEQ [Suspect]
     Active Substance: BUDESONIDE\FORMOTEROL FUMARATE
     Indication: ASTHMA
     Dosage: 1 DF (BUDESONIDE 400 MCG, FORMOTEROL FUMARATE 12 MCG), Q12H
     Route: 065

REACTIONS (6)
  - Tachycardia [Recovering/Resolving]
  - Blood pressure increased [Recovering/Resolving]
  - Malaise [Unknown]
  - Myocardial infarction [Unknown]
  - Drug administration error [Unknown]
  - Palpitations [Recovering/Resolving]

NARRATIVE: CASE EVENT DATE: 20180527
